FAERS Safety Report 8534740-X (Version None)
Quarter: 2012Q3

REPORT INFORMATION
  Report Type: 
  Country: None (occurrence: None)
  Receive Date: 20120724
  Receipt Date: 20120718
  Transmission Date: 20120928
  Serious: Yes (Other)
  Sender: FDA-Public Use
  Company Number: FR-GLAXOSMITHKLINE-B0815513A

PATIENT
  Sex: Female

DRUGS (5)
  1. AZILECT [Concomitant]
     Dosage: 1MG PER DAY
     Route: 065
     Dates: start: 20100601
  2. PRAMIPEXOLE DIHYDROCHLORIDE [Suspect]
     Indication: PARKINSON'S DISEASE
     Dosage: 2.1MG PER DAY
     Route: 048
     Dates: start: 20110601
  3. HAVLANE [Concomitant]
     Dates: start: 20120601
  4. SINEMET [Concomitant]
     Dosage: 150MG PER DAY
     Dates: start: 20120501
  5. REQUIP [Suspect]
     Indication: PARKINSON'S DISEASE
     Dosage: 24MG PER DAY
     Route: 048
     Dates: start: 20100501, end: 20110601

REACTIONS (6)
  - PATHOLOGICAL GAMBLING [None]
  - STEREOTYPY [None]
  - PSYCHOMOTOR HYPERACTIVITY [None]
  - IMPULSE-CONTROL DISORDER [None]
  - DEPENDENCE [None]
  - SOMNOLENCE [None]
